FAERS Safety Report 8057162-7 (Version None)
Quarter: 2012Q1

REPORT INFORMATION
  Report Type: 
  Country: None (occurrence: None)
  Receive Date: 20120119
  Receipt Date: 20120112
  Transmission Date: 20120608
  Serious: Yes (Hospitalization, Other)
  Sender: FDA-Public Use
  Company Number: US-ABBOTT-12P-163-0893229-00

PATIENT
  Age: 30 Year
  Sex: Male

DRUGS (3)
  1. HUMIRA [Suspect]
     Indication: CROHN'S DISEASE
     Dates: end: 20101201
  2. MERCAPTOPURINE [Concomitant]
     Indication: CROHN'S DISEASE
  3. HUMIRA [Suspect]
     Dates: start: 20111201

REACTIONS (5)
  - INTESTINAL FISTULA [None]
  - DIARRHOEA [None]
  - WEIGHT DECREASED [None]
  - CROHN'S DISEASE [None]
  - COLOSTOMY [None]
